FAERS Safety Report 7380033-6 (Version None)
Quarter: 2011Q1

REPORT INFORMATION
  Report Type: 
  Country: None (occurrence: None)
  Receive Date: 20110329
  Receipt Date: 20110322
  Transmission Date: 20110831
  Serious: Yes (Hospitalization)
  Sender: FDA-Public Use
  Company Number: FR-BRISTOL-MYERS SQUIBB COMPANY-15632631

PATIENT
  Age: 59 Year
  Sex: Female

DRUGS (5)
  1. PROFENID [Suspect]
     Indication: PAIN
     Route: 042
     Dates: start: 20101216, end: 20101216
  2. METFORMIN HCL [Suspect]
     Indication: TYPE 2 DIABETES MELLITUS
     Dosage: METFORMIN DCI PHARMA
     Dates: end: 20101216
  3. BISOPROLOL [Suspect]
     Route: 048
     Dates: end: 20101216
  4. LEVOTHYROX [Concomitant]
     Route: 048
  5. COAPROVEL FILM-COATED TABS 150/12.5 MG [Suspect]
     Indication: HYPERTENSION
     Dosage: 1DF: 150MG/12.5MG
     Route: 048
     Dates: end: 20101216

REACTIONS (4)
  - BRADYCARDIA [None]
  - LACTIC ACIDOSIS [None]
  - RENAL FAILURE ACUTE [None]
  - NEPHROLITHIASIS [None]
